FAERS Safety Report 24044818 (Version 1)
Quarter: 2024Q3

REPORT INFORMATION
  Report Type: Spontaneous
  Country: JP (occurrence: JP)
  Receive Date: 20240703
  Receipt Date: 20240703
  Transmission Date: 20241016
  Serious: Yes (Death, Hospitalization, Other)
  Sender: RANBAXY
  Company Number: JP-SUN PHARMACEUTICAL INDUSTRIES LTD-2024R1-453922

PATIENT
  Age: 2 Decade
  Sex: Female
  Weight: 57.2 kg

DRUGS (2)
  1. MIRTAZAPINE [Suspect]
     Active Substance: MIRTAZAPINE
     Indication: Mental disorder
     Route: 065
  2. DEXTROMETHORPHAN [Suspect]
     Active Substance: DEXTROMETHORPHAN
     Indication: Mental disorder
     Route: 065

REACTIONS (4)
  - Therapeutic product effect increased [Unknown]
  - Respiratory failure [Fatal]
  - Overdose [Fatal]
  - Necrosis [Fatal]
